FAERS Safety Report 7750169-6 (Version None)
Quarter: 2011Q3

REPORT INFORMATION
  Report Type: 
  Country: None (occurrence: None)
  Receive Date: 20110914
  Receipt Date: 20110914
  Transmission Date: 20111222
  Serious: Yes (Other)
  Sender: FDA-Public Use
  Company Number: None

PATIENT
  Sex: Male
  Weight: 70.306 kg

DRUGS (9)
  1. LITHIUM [Concomitant]
     Route: 048
  2. DEPAKOTE [Concomitant]
     Indication: BIPOLAR DISORDER
     Dosage: 1500 MG
     Route: 048
     Dates: start: 20000301, end: 20080701
  3. SUPPLEMENTS [Concomitant]
  4. TOPAMAX [Suspect]
     Indication: TREMOR
     Dosage: 100 MG
     Route: 048
     Dates: start: 20070917, end: 20071228
  5. LIPITOR [Concomitant]
     Route: 048
  6. INDERAL [Concomitant]
     Route: 048
  7. ASPIRIN [Concomitant]
     Route: 048
  8. XANAX [Concomitant]
     Route: 048
  9. DEPAKOTE ER [Concomitant]
     Route: 048

REACTIONS (6)
  - ANXIETY [None]
  - LIVER FUNCTION TEST ABNORMAL [None]
  - SUICIDAL IDEATION [None]
  - CONFUSIONAL STATE [None]
  - FATIGUE [None]
  - MENTAL STATUS CHANGES [None]
